FAERS Safety Report 16797358 (Version 1)
Quarter: 2019Q3

REPORT INFORMATION
  Report Type: Spontaneous
  Country: US (occurrence: US)
  Receive Date: 20190912
  Receipt Date: 20190912
  Transmission Date: 20191005
  Serious: No
  Sender: FDA-Public Use
  Company Number: US-APOTEX-2019AP021343

PATIENT
  Sex: Female

DRUGS (4)
  1. AZELASTINE HYDROCHLORIDE. [Suspect]
     Active Substance: AZELASTINE HYDROCHLORIDE
     Indication: HYPERSENSITIVITY
     Dosage: UNK, BID
     Route: 045
     Dates: start: 20190522
  2. MONTELUKAST SODIUM. [Suspect]
     Active Substance: MONTELUKAST SODIUM
     Indication: HYPERSENSITIVITY
     Dosage: 1 DF, Q.H.S. (1 PILL AT NIGHT BEFORE BEDTIME)
     Route: 065
     Dates: start: 20190522
  3. FLUTICASONE. [Suspect]
     Active Substance: FLUTICASONE
     Indication: HYPERSENSITIVITY
     Dosage: UNK, QD
     Route: 045
     Dates: start: 20190522
  4. CHLORASEPTIC SORE THROAT [Concomitant]
     Active Substance: PHENOL
     Indication: THROAT IRRITATION
     Dosage: UNK, BID
     Route: 065

REACTIONS (3)
  - Chest discomfort [Unknown]
  - Pharyngitis [Unknown]
  - Cough [Unknown]
